FAERS Safety Report 10305308 (Version 1)
Quarter: 2014Q3

REPORT INFORMATION
  Report Type: Spontaneous
  Country: FR (occurrence: None)
  Receive Date: 20140710
  Receipt Date: 20140710
  Transmission Date: 20150326
  Serious: Yes (Hospitalization)
  Sender: FDA-Public Use
  Company Number: FK201402603

PATIENT
  Age: 67 Year
  Sex: Male

DRUGS (1)
  1. CEFTRIAXONE. [Suspect]
     Active Substance: CEFTRIAXONE
     Indication: INFLAMMATION
     Dosage: NOT OTHERWISE SPECIFIED
     Route: 042
     Dates: start: 20130619, end: 20130619

REACTIONS (1)
  - Erythema [None]

NARRATIVE: CASE EVENT DATE: 20130619
